FAERS Safety Report 16698009 (Version 1)
Quarter: 2019Q3

REPORT INFORMATION
  Report Type: Spontaneous
  Country: FR (occurrence: FR)
  Receive Date: 20190813
  Receipt Date: 20190813
  Transmission Date: 20191004
  Serious: Yes (Other)
  Sender: FDA-Public Use
  Company Number: FR-TEVA-2019-FR-1091106

PATIENT
  Age: 83 Year
  Sex: Male
  Weight: 65 kg

DRUGS (6)
  1. ESOMEPRAZOLE. [Suspect]
     Active Substance: ESOMEPRAZOLE MAGNESIUM
     Indication: ABDOMINAL PAIN UPPER
     Route: 048
  2. CORDARONE [Suspect]
     Active Substance: AMIODARONE HYDROCHLORIDE
     Indication: ATRIAL FIBRILLATION
     Route: 048
     Dates: end: 2012
  3. NEBIVOLOL. [Suspect]
     Active Substance: NEBIVOLOL
     Indication: MYOCARDIAL INFARCTION
     Route: 048
  4. ROSUVASTATINE BIOGARAN 10 MG, COMPRIM? PELLICUL? [Suspect]
     Active Substance: ROSUVASTATIN ZINC
     Indication: MYOCARDIAL INFARCTION
     Route: 048
  5. KARDEGIC [Suspect]
     Active Substance: ASPIRIN DL-LYSINE
     Indication: INFARCTION
     Route: 048
  6. PREVISCAN [FLUINDIONE] [Suspect]
     Active Substance: FLUINDIONE
     Indication: ATRIAL FIBRILLATION
     Route: 048

REACTIONS (2)
  - Interstitial lung disease [Not Recovered/Not Resolved]
  - Pulmonary fibrosis [Not Recovered/Not Resolved]
